FAERS Safety Report 11087843 (Version 1)
Quarter: 2015Q2

REPORT INFORMATION
  Report Type: Spontaneous
  Country: US (occurrence: None)
  Receive Date: 20150501
  Receipt Date: 20150501
  Transmission Date: 20150821
  Serious: Yes (Life-Threatening)
  Sender: FDA-Public Use
  Company Number: None

PATIENT
  Age: 62 Year
  Sex: Female
  Weight: 51.3 kg

DRUGS (1)
  1. AZITHROMYCIN [Suspect]
     Active Substance: AZITHROMYCIN ANHYDROUS
     Indication: UPPER RESPIRATORY TRACT INFECTION
     Route: 048
     Dates: start: 20150309, end: 20150311

REACTIONS (4)
  - Electrocardiogram QT prolonged [None]
  - Ventricular fibrillation [None]
  - Drug hypersensitivity [None]
  - Unresponsive to stimuli [None]

NARRATIVE: CASE EVENT DATE: 20150311
